FAERS Safety Report 25936073 (Version 1)
Quarter: 2025Q4

REPORT INFORMATION
  Report Type: Spontaneous
  Country: EU (occurrence: EU)
  Receive Date: 20251017
  Receipt Date: 20251017
  Transmission Date: 20260118
  Serious: Yes (Other)
  Sender: MYLAN
  Company Number: EU-ROCHE-1271997

PATIENT
  Age: 42 Year
  Sex: Female
  Weight: 69 kg

DRUGS (9)
  1. TAMOXIFEN [Suspect]
     Active Substance: TAMOXIFEN
     Indication: HER2 positive breast cancer
     Dosage: 20 MILLIGRAM, QD (LAST DOSE PRIOR TO SAE:06/SEP/2013)
     Dates: start: 20130608, end: 20130906
  2. TRASTUZUMAB [Suspect]
     Active Substance: TRASTUZUMAB
     Indication: HER2 positive breast cancer
     Dosage: 8 MILLIGRAM/KILOGRAM,1 CYCLE (CYCLE 1, AS PER PROTOCOL LOADING DOSE)
     Dates: start: 20130318, end: 20130318
  3. TRASTUZUMAB [Suspect]
     Active Substance: TRASTUZUMAB
     Dosage: 6 MILLIGRAM/KILOGRAM, Q3W (DATE OF LAST DOSE PRIOR TO SAE: 16/AUG/2013)
     Dates: start: 20130408, end: 20131010
  4. PERTUZUMAB [Suspect]
     Active Substance: PERTUZUMAB
     Indication: HER2 positive breast cancer
     Dosage: 840 MILLIGRAM,1 CYCLE (LOADING DOSE CYCLE 1 ONLY AS PER PROTOCOL)
     Dates: start: 20130318, end: 20130318
  5. PERTUZUMAB [Suspect]
     Active Substance: PERTUZUMAB
     Dosage: 420 MILLIGRAM, Q3W (DATE OF LAST DOSE PRIOR TO SAE: 16/AUG/2013MAINTENANCE DOSE)
     Dates: start: 20130408, end: 20131010
  6. LORMETAZEPAM [Concomitant]
     Active Substance: LORMETAZEPAM
     Dosage: UNK
  7. OMEPRAZOLE [Concomitant]
     Active Substance: OMEPRAZOLE
     Dosage: UNK
  8. DIAZEPAM [Concomitant]
     Active Substance: DIAZEPAM
     Dosage: UNK
  9. IBUPROFEN [Concomitant]
     Active Substance: IBUPROFEN
     Dosage: UNK

REACTIONS (1)
  - Cardiac failure [Recovered/Resolved]

NARRATIVE: CASE EVENT DATE: 20130906
